FAERS Safety Report 19925937 (Version 1)
Quarter: 2021Q4

REPORT INFORMATION
  Report Type: Report from Study
  Country: None (occurrence: US)
  Receive Date: 20211007
  Receipt Date: 20211007
  Transmission Date: 20220303
  Serious: Yes (Hospitalization)
  Sender: FDA-Public Use
  Company Number: US-ABBVIE-21K-163-4109465-00

PATIENT
  Sex: Female

DRUGS (3)
  1. HUMIRA [Suspect]
     Active Substance: ADALIMUMAB
     Indication: Uveitis
     Dosage: CITRATE FREE
     Route: 058
  2. MODERNA COVID-19 VACCINE [Concomitant]
     Active Substance: CX-024414
     Indication: COVID-19 immunisation
     Dates: start: 20210202, end: 20210202
  3. MODERNA COVID-19 VACCINE [Concomitant]
     Active Substance: CX-024414
     Dates: start: 20210302, end: 20210302

REACTIONS (2)
  - Skin laceration [Recovering/Resolving]
  - Accident [Recovering/Resolving]
